FAERS Safety Report 10438033 (Version 1)
Quarter: 2014Q3

REPORT INFORMATION
  Report Type: Spontaneous
  Country: US (occurrence: US)
  Receive Date: 20140908
  Receipt Date: 20140908
  Transmission Date: 20150326
  Serious: No
  Sender: FDA-Public Use
  Company Number: US-BRISTOL-MYERS SQUIBB COMPANY-19836105

PATIENT
  Age: 61 Year
  Sex: Female
  Weight: 83.9 kg

DRUGS (1)
  1. ABILIFY [Suspect]
     Active Substance: ARIPIPRAZOLE
     Indication: HALLUCINATION

REACTIONS (7)
  - Muscle spasms [Unknown]
  - Feeling abnormal [Unknown]
  - Constipation [Unknown]
  - Tendon disorder [Unknown]
  - Abdominal pain upper [Unknown]
  - Trismus [Unknown]
  - Muscle tightness [Unknown]
